FAERS Safety Report 10491469 (Version 1)
Quarter: 2014Q4

REPORT INFORMATION
  Report Type: Spontaneous
  Country: US (occurrence: US)
  Receive Date: 20141002
  Receipt Date: 20141002
  Transmission Date: 20150528
  Serious: No
  Sender: FDA-Public Use
  Company Number: US-GLAXOSMITHKLINE-A1053739A

PATIENT
  Age: 65 Year
  Sex: Female

DRUGS (6)
  1. BACLOFEN. [Concomitant]
     Active Substance: BACLOFEN
  2. VASOTEC [Concomitant]
     Active Substance: ENALAPRIL MALEATE
  3. FLONASE [Concomitant]
     Active Substance: FLUTICASONE PROPIONATE
  4. ADVAIR HFA [Suspect]
     Active Substance: FLUTICASONE PROPIONATE\SALMETEROL XINAFOATE
     Indication: ASTHMA
     Dosage: 1PUFF TWICE PER DAY
     Route: 055
  5. VENTOLIN [Concomitant]
     Active Substance: ALBUTEROL SULFATE
  6. LUNESTA [Concomitant]
     Active Substance: ESZOPICLONE

REACTIONS (12)
  - Retching [Unknown]
  - Choking sensation [Unknown]
  - Nasal discomfort [Unknown]
  - Expired product administered [Unknown]
  - Bronchitis [Unknown]
  - Nasopharyngitis [Unknown]
  - Nervousness [Unknown]
  - Dyspnoea [Unknown]
  - Laryngitis [Unknown]
  - Cough [Unknown]
  - Vomiting [Unknown]
  - Drug ineffective [Unknown]

NARRATIVE: CASE EVENT DATE: 20131214
